FAERS Safety Report 24754613 (Version 1)
Quarter: 2024Q4

REPORT INFORMATION
  Report Type: Spontaneous
  Country: GB (occurrence: GB)
  Receive Date: 20241219
  Receipt Date: 20241219
  Transmission Date: 20250114
  Serious: Yes (Other)
  Sender: PFIZER
  Company Number: None

PATIENT
  Age: 22 Year
  Sex: Female

DRUGS (1)
  1. DEPO-PROVERA [Suspect]
     Active Substance: MEDROXYPROGESTERONE ACETATE
     Indication: Contraception
     Dosage: 150 MG, EVERY 3 MONTHS (EVERY 12 WEEKS)
     Route: 030
     Dates: start: 202406

REACTIONS (1)
  - Genito-pelvic pain/penetration disorder [Not Recovered/Not Resolved]

NARRATIVE: CASE EVENT DATE: 20241001
